FAERS Safety Report 5404379-3 (Version None)
Quarter: 2007Q3

REPORT INFORMATION
  Report Type: 
  Country: None (occurrence: None)
  Receive Date: 20070711
  Receipt Date: 20060918
  Transmission Date: 20080115
  Serious: Yes (Other)
  Sender: FDA-Public Use
  Company Number: 239552

PATIENT
  Age: 53 Year
  Sex: Female
  Weight: 77.6 kg

DRUGS (16)
  1. ACTIVELLA [Suspect]
     Indication: MENOPAUSAL SYMPTOMS
     Dosage: ORAL
     Route: 048
     Dates: start: 20010418, end: 20010511
  2. PREMPRO [Suspect]
     Indication: MENOPAUSAL SYMPTOMS
     Dosage: ORAL
     Route: 048
     Dates: start: 20000310, end: 20010401
  3. PROVERA [Suspect]
     Indication: MENOPAUSAL SYMPTOMS
     Dosage: 10 MG, ORAL
     Route: 048
     Dates: start: 19960501, end: 19960801
  4. PREMARIN [Suspect]
     Indication: MENOPAUSAL SYMPTOMS
     Dosage: 0.625 - 1.25 MG, ORAL
     Route: 048
     Dates: start: 19951120, end: 19960801
  5. LOESTRIN 1.5/30 [Suspect]
     Indication: MENOPAUSAL SYMPTOMS
     Dosage: 15/30, ORAL
     Route: 048
     Dates: start: 19960809, end: 19970201
  6. NORDETTE-21 [Suspect]
     Indication: MENOPAUSAL SYMPTOMS
     Dosage: ORAL
     Route: 048
     Dates: start: 19970214, end: 19980201
  7. PREMPHASE (PREMARIN;CYCRIN 14/14) [Suspect]
     Indication: MENOPAUSAL SYMPTOMS
     Dosage: ORAL
     Route: 048
     Dates: start: 19980201, end: 20000310
  8. PREMARIN [Concomitant]
  9. CREAM [Concomitant]
  10. SYNTHROID [Concomitant]
  11. PRILOSEC /00661201/ (OMEPRAZOLE) [Concomitant]
  12. LORAZEPAM [Concomitant]
  13. AMITRIPTYLINE /00002202/ (AMITRIPTYLINE HYDROCHLORIDE) [Concomitant]
  14. NAPROSYN /00256201/ (NAPROXEN) [Concomitant]
  15. VIOXX [Concomitant]
  16. ZANTAC 150 [Concomitant]

REACTIONS (1)
  - BREAST CANCER [None]
